FAERS Safety Report 6758710-7 (Version None)
Quarter: 2010Q2

REPORT INFORMATION
  Report Type: 
  Country: None (occurrence: None)
  Receive Date: 20100607
  Receipt Date: 20100601
  Transmission Date: 20101027
  Serious: Yes (Other)
  Sender: FDA-Public Use
  Company Number: US-SANOFI-AVENTIS-2010SA031898

PATIENT
  Age: 57 Year
  Sex: Female

DRUGS (1)
  1. LANTUS [Suspect]
     Route: 058
     Dates: start: 20020101

REACTIONS (1)
  - RENAL FAILURE [None]
